FAERS Safety Report 19841505 (Version 10)
Quarter: 2022Q4

REPORT INFORMATION
  Report Type: Report from Study
  Country: US (occurrence: US)
  Receive Date: 20210915
  Receipt Date: 20221011
  Transmission Date: 20230113
  Serious: Yes (Death, Hospitalization, Other)
  Sender: FDA-Public Use
  Company Number: US-TAKEDA-2018TUS008133

PATIENT
  Age: 52 Year
  Sex: Female
  Weight: 50 kg

DRUGS (11)
  1. PONATINIB [Suspect]
     Active Substance: PONATINIB
     Indication: Chronic myeloid leukaemia
     Dosage: 45 MILLIGRAM, QD
     Route: 048
     Dates: start: 20170906
  2. PONATINIB [Suspect]
     Active Substance: PONATINIB
     Dosage: 30 MILLIGRAM, QD
     Route: 048
  3. PONATINIB [Suspect]
     Active Substance: PONATINIB
     Dosage: 45 MILLIGRAM, QD
     Route: 048
  4. PONATINIB [Suspect]
     Active Substance: PONATINIB
     Dosage: 45 MILLIGRAM, QD
     Route: 065
     Dates: start: 20211019
  5. FLUOXETINE HYDROCHLORIDE [Concomitant]
     Active Substance: FLUOXETINE HYDROCHLORIDE
     Dosage: 40 MILLIGRAM
     Route: 065
  6. TRAZODONE [Concomitant]
     Active Substance: TRAZODONE HYDROCHLORIDE
     Dosage: UNK
     Route: 065
  7. XANAX [Concomitant]
     Active Substance: ALPRAZOLAM
     Dosage: UNK
     Route: 065
  8. PERCOCET [Concomitant]
     Active Substance: ACETAMINOPHEN\OXYCODONE HYDROCHLORIDE
     Dosage: UNK
     Route: 065
  9. AMLODIPINE BESYLATE [Concomitant]
     Active Substance: AMLODIPINE BESYLATE
     Dosage: UNK
     Route: 065
  10. CLONIDINE HYDROCHLORIDE [Concomitant]
     Active Substance: CLONIDINE HYDROCHLORIDE
     Dosage: 0.3 MILLIGRAM
     Route: 065
  11. LISINOPRIL [Concomitant]
     Active Substance: LISINOPRIL
     Dosage: UNK
     Route: 065

REACTIONS (37)
  - Death [Fatal]
  - Neuropathy peripheral [Unknown]
  - Fall [Unknown]
  - Lower limb fracture [Unknown]
  - Hip fracture [Recovering/Resolving]
  - Vascular graft [Unknown]
  - Cardiac disorder [Unknown]
  - Nerve injury [Unknown]
  - Somnolence [Unknown]
  - Bedridden [Unknown]
  - Chest pain [Unknown]
  - Skin exfoliation [Unknown]
  - Contusion [Unknown]
  - Neck pain [Unknown]
  - Blood pressure increased [Unknown]
  - Rash macular [Unknown]
  - Pain in extremity [Unknown]
  - Muscle spasms [Unknown]
  - Hypertension [Unknown]
  - Fatigue [Unknown]
  - Back pain [Unknown]
  - Arthralgia [Unknown]
  - Malaise [Unknown]
  - Fear of death [Unknown]
  - Weight decreased [Unknown]
  - Mobility decreased [Unknown]
  - Blood albumin decreased [Unknown]
  - Osteoarthritis [Unknown]
  - Joint range of motion decreased [Unknown]
  - Spinal stenosis [Unknown]
  - Anxiety [Unknown]
  - Headache [Unknown]
  - Cerebral disorder [Unknown]
  - Burning sensation [Unknown]
  - Illness [Unknown]
  - Product distribution issue [Unknown]
  - Product dose omission issue [Unknown]

NARRATIVE: CASE EVENT DATE: 20210409
